FAERS Safety Report 7310342-8 (Version None)
Quarter: 2011Q1

REPORT INFORMATION
  Report Type: 
  Country: None (occurrence: None)
  Receive Date: 20110214
  Receipt Date: 20100727
  Transmission Date: 20110831
  Serious: Yes (Hospitalization)
  Sender: FDA-Public Use
  Company Number: 016208

PATIENT
  Sex: Female
  Weight: 78.5 kg

DRUGS (3)
  1. CIMZIA [Suspect]
     Indication: CROHN'S DISEASE
     Dosage: UNSPECIFIED, SUBCUTANEOUS
     Route: 058
     Dates: start: 20100421
  2. CYMBALTA [Concomitant]
  3. FOLIC ACID [Concomitant]

REACTIONS (2)
  - NEPHROLITHIASIS [None]
  - UROSEPSIS [None]
